FAERS Safety Report 25703917 (Version 3)
Quarter: 2025Q4

REPORT INFORMATION
  Report Type: Spontaneous
  Country: US (occurrence: US)
  Receive Date: 20250820
  Receipt Date: 20251014
  Transmission Date: 20260117
  Serious: No
  Sender: BIOGEN
  Company Number: US-BIOGEN-2025BI01320841

PATIENT
  Age: 36 Year
  Sex: Female

DRUGS (3)
  1. ZURZUVAE [Suspect]
     Active Substance: ZURANOLONE
     Indication: Perinatal depression
     Dosage: TAKE 2 CAPSULES (50 MG) EVERY DAY FOR 14
     Route: 050
     Dates: start: 20250807, end: 20250812
  2. ZURZUVAE [Suspect]
     Active Substance: ZURANOLONE
     Route: 050
  3. ZOLOFT [Concomitant]
     Active Substance: SERTRALINE HYDROCHLORIDE
     Indication: Product used for unknown indication
     Route: 050
     Dates: end: 20250811

REACTIONS (2)
  - Depressed level of consciousness [Unknown]
  - Sedation [Unknown]

NARRATIVE: CASE EVENT DATE: 20250801
